FAERS Safety Report 8108234-X (Version None)
Quarter: 2012Q1

REPORT INFORMATION
  Report Type: 
  Country: None (occurrence: None)
  Receive Date: 20120202
  Receipt Date: 20120109
  Transmission Date: 20120608
  Serious: No
  Sender: FDA-Public Use
  Company Number: US-AMGEN-USASP2012001772

PATIENT
  Age: 61 Year
  Sex: Male

DRUGS (2)
  1. ENBREL [Suspect]
     Indication: SYSTEMIC LUPUS ERYTHEMATOSUS
  2. ENBREL [Suspect]
     Indication: RHEUMATOID ARTHRITIS
     Dosage: 50 MG, QWK
     Dates: start: 20080901

REACTIONS (7)
  - BLOOD GLUCOSE INCREASED [None]
  - PARAESTHESIA [None]
  - NASAL CONGESTION [None]
  - DYSPNOEA [None]
  - PAIN IN EXTREMITY [None]
  - BLOOD DISORDER [None]
  - HYPOAESTHESIA [None]
